FAERS Safety Report 8108158-8 (Version None)
Quarter: 2012Q1

REPORT INFORMATION
  Report Type: 
  Country: None (occurrence: None)
  Receive Date: 20120202
  Receipt Date: 20120130
  Transmission Date: 20120608
  Serious: Yes (Death)
  Sender: FDA-Public Use
  Company Number: US-JNJFOC-20120113545

PATIENT
  Sex: Female

DRUGS (3)
  1. PLAVIX [Concomitant]
  2. XARELTO [Suspect]
     Indication: ORTHOPEDIC PROCEDURE
     Route: 048
  3. ASPIRIN [Concomitant]

REACTIONS (1)
  - DEATH [None]
